FAERS Safety Report 8101212-6 (Version None)
Quarter: 2012Q1

REPORT INFORMATION
  Report Type: 
  Country: None (occurrence: None)
  Receive Date: 20120129
  Receipt Date: 20111013
  Transmission Date: 20120608
  Serious: No
  Sender: FDA-Public Use
  Company Number: US-ABBOTT-11P-163-0864190-00

PATIENT
  Age: 37 Year
  Sex: Female

DRUGS (6)
  1. SUPPLEMENTS [Concomitant]
     Indication: PRODUCT USED FOR UNKNOWN INDICATION
  2. EYE DROPS [Concomitant]
     Indication: TERRIEN'S MARGINAL DEGENERATION
  3. RETIN-A [Concomitant]
     Indication: PRODUCT USED FOR UNKNOWN INDICATION
     Route: 061
  4. RANITIDINE [Concomitant]
     Indication: GASTROOESOPHAGEAL REFLUX DISEASE
  5. HUMIRA [Suspect]
     Indication: CROHN'S DISEASE
  6. ALBUTEROL [Concomitant]
     Indication: ASTHMA

REACTIONS (4)
  - OROPHARYNGEAL PAIN [None]
  - NASOPHARYNGITIS [None]
  - DIZZINESS [None]
  - MALAISE [None]
